FAERS Safety Report 5193093-8 (Version None)
Quarter: 2006Q4

REPORT INFORMATION
  Report Type: 
  Country: None (occurrence: None)
  Receive Date: 20061228
  Receipt Date: 20060418
  Transmission Date: 20070319
  Serious: No
  Sender: FDA-Public Use
  Company Number: US-GLAXOSMITHKLINE-A0602172A

PATIENT
  Age: 75 Year
  Sex: Male

DRUGS (2)
  1. AVODART [Suspect]
     Dosage: 1CAPL PER DAY
     Route: 048
  2. TRUSOPT [Concomitant]

REACTIONS (1)
  - INTRAOCULAR PRESSURE INCREASED [None]
